FAERS Safety Report 6320625-6 (Version None)
Quarter: 2009Q3

REPORT INFORMATION
  Report Type: 
  Country: None (occurrence: None)
  Receive Date: 20090822
  Receipt Date: 20081120
  Transmission Date: 20100115
  Serious: No
  Sender: FDA-Public Use
  Company Number: US-ABBOTT-08P-163-0489325-00

PATIENT
  Sex: Female

DRUGS (6)
  1. NIASPAN [Suspect]
     Indication: BLOOD FIBRINOGEN
     Dosage: 500/20 MG EVERY DAY
     Route: 048
     Dates: start: 20070101
  2. NIASPAN [Suspect]
     Indication: LIPOPROTEIN (A)
  3. WELLCHOL [Concomitant]
     Indication: BLOOD FIBRINOGEN
     Dosage: UNKNOWN
  4. WELLCHOL [Concomitant]
     Indication: LIPOPROTEIN (A)
  5. ASPIRIN [Concomitant]
     Indication: DRUG USE FOR UNKNOWN INDICATION
     Route: 048
  6. LISINOPRIL [Concomitant]
     Indication: HYPERTENSION
     Dosage: 20-12.5 MG, 1/2 TAB DAILY
     Route: 048

REACTIONS (1)
  - FLUSHING [None]
